FAERS Safety Report 8922418 (Version 2)
Quarter: 2013Q3

REPORT INFORMATION
  Report Type: Spontaneous
  Country: US (occurrence: GB)
  Receive Date: 20121123
  Receipt Date: 20130927
  Transmission Date: 20140515
  Serious: Yes (Hospitalization)
  Sender: FDA-Public Use
  Company Number: PHHY2012GB105731

PATIENT
  Age: 69 Year
  Sex: 0

DRUGS (4)
  1. LISINOPRIL [Suspect]
     Indication: HYPERTENSION
     Dosage: 5 MG, UNK
     Route: 048
     Dates: end: 20041231
  2. IBUPROFEN [Suspect]
     Indication: ARTHRITIS
     Dosage: 400 MG, UNK
     Route: 048
     Dates: end: 20041231
  3. IBUPROFEN [Suspect]
     Dosage: DOSE: 400 MG
     Route: 048
     Dates: end: 20041231
  4. BENDROFLUAZIDE [Concomitant]
     Indication: HYPERTENSION
     Dosage: 2.5 MG, UNK
     Route: 048
     Dates: end: 20041231

REACTIONS (2)
  - Gastrooesophageal reflux disease [Recovering/Resolving]
  - Renal failure acute [Recovering/Resolving]
